FAERS Safety Report 4417390-6 (Version None)
Quarter: 2004Q3

REPORT INFORMATION
  Report Type: 
  Country: None (occurrence: None)
  Receive Date: 20040803
  Receipt Date: 20040726
  Transmission Date: 20050211
  Serious: No
  Sender: FDA-Public Use
  Company Number: 2004UW15684

PATIENT
  Sex: 0

DRUGS (1)
  1. PULMICORT RESPULES [Suspect]
     Indication: ASTHMA

REACTIONS (1)
  - BONE MARROW DEPRESSION [None]
